FAERS Safety Report 15181690 (Version 1)
Quarter: 2018Q3

REPORT INFORMATION
  Report Type: Spontaneous
  Country: US (occurrence: US)
  Receive Date: 20180723
  Receipt Date: 20180723
  Transmission Date: 20181010
  Serious: No
  Sender: FDA-Public Use
  Company Number: US-AMGEN-USASP2018059743

PATIENT
  Age: 60 Year
  Sex: Male
  Weight: 107.48 kg

DRUGS (1)
  1. REPATHA [Suspect]
     Active Substance: EVOLOCUMAB
     Indication: HYPERLIPIDAEMIA
     Dosage: 140 MG, UNK
     Route: 058
     Dates: start: 201707, end: 20180501

REACTIONS (3)
  - Rash vesicular [Not Recovered/Not Resolved]
  - Condition aggravated [Unknown]
  - Rash erythematous [Not Recovered/Not Resolved]
